FAERS Safety Report 4486738-9 (Version None)
Quarter: 2004Q4

REPORT INFORMATION
  Report Type: 
  Country: None (occurrence: None)
  Receive Date: 20041021
  Receipt Date: 20041013
  Transmission Date: 20050328
  Serious: Yes (Other)
  Sender: FDA-Public Use
  Company Number: S04-CAN-06744-01

PATIENT
  Sex: 0

DRUGS (2)
  1. NAMENDA [Suspect]
  2. EXELON [Concomitant]

REACTIONS (1)
  - BLINDNESS UNILATERAL [None]
